FAERS Safety Report 10149216 (Version 1)
Quarter: 2014Q2

REPORT INFORMATION
  Report Type: Spontaneous
  Country: GB (occurrence: GB)
  Receive Date: 20140502
  Receipt Date: 20140502
  Transmission Date: 20141212
  Serious: Yes (Hospitalization)
  Sender: FDA-Public Use
  Company Number: GB-RANBAXY-2014RR-80824

PATIENT
  Age: 84 Year
  Sex: Female

DRUGS (11)
  1. LISINOPRIL [Suspect]
     Indication: HYPERTENSION
     Dosage: 5 MG, DAILY
     Route: 048
  2. SPIRONOLACTONE [Suspect]
     Indication: PRODUCT USED FOR UNKNOWN INDICATION
     Dosage: 25 MG, DAILY
     Route: 048
  3. BUMETANIDE [Suspect]
     Indication: PRODUCT USED FOR UNKNOWN INDICATION
     Dosage: 1 MG, DAILY
     Route: 048
  4. LIRAGLUTIDE [Suspect]
     Indication: TYPE 2 DIABETES MELLITUS
     Dosage: AS DIRECTED
     Route: 048
  5. TOLBUTAMIDE [Suspect]
     Indication: TYPE 2 DIABETES MELLITUS
     Dosage: 1G TWICE DAILY
     Route: 048
  6. WARFARIN [Suspect]
     Indication: ATRIAL FIBRILLATION
     Dosage: AS PER INR
     Route: 048
  7. ACARBOSE [Concomitant]
     Indication: PRODUCT USED FOR UNKNOWN INDICATION
     Dosage: UNK
     Route: 065
  8. ATORVASTATIN [Concomitant]
     Indication: PRODUCT USED FOR UNKNOWN INDICATION
     Dosage: UNK
     Route: 065
  9. BISOPROLOL [Concomitant]
     Indication: PRODUCT USED FOR UNKNOWN INDICATION
     Dosage: UNK
     Route: 065
  10. OMEPRAZOLE [Concomitant]
     Indication: PRODUCT USED FOR UNKNOWN INDICATION
     Dosage: UNK
     Route: 065
  11. PARACETAMOL [Concomitant]
     Indication: PRODUCT USED FOR UNKNOWN INDICATION
     Dosage: UNK
     Route: 065

REACTIONS (4)
  - Renal failure acute [Unknown]
  - Hypoglycaemia [Unknown]
  - Epistaxis [Unknown]
  - International normalised ratio increased [Unknown]
